FAERS Safety Report 12535404 (Version 1)
Quarter: 2016Q3

REPORT INFORMATION
  Report Type: Spontaneous
  Country: US (occurrence: None)
  Receive Date: 20160706
  Receipt Date: 20160706
  Transmission Date: 20161109
  Serious: Yes (Other)
  Sender: FDA-Public Use
  Company Number: None

PATIENT
  Age: 10 Year
  Sex: Male
  Weight: 36.29 kg

DRUGS (3)
  1. IBUPROFEN. [Concomitant]
     Active Substance: IBUPROFEN
  2. PROBIOTICS [Concomitant]
     Active Substance: PROBIOTICS NOS
  3. OPTIPAX, FENAZONA, CLORHIDRATOL, 40 MG BIOCODEX [Suspect]
     Active Substance: ANTIPYRINE\LIDOCAINE
     Indication: EAR INFECTION
     Dates: start: 20160702, end: 20160705

REACTIONS (2)
  - Pyrexia [None]
  - Ear pain [None]

NARRATIVE: CASE EVENT DATE: 20160705
